FAERS Safety Report 25461454 (Version 1)
Quarter: 2025Q2

REPORT INFORMATION
  Report Type: Spontaneous
  Country: HR (occurrence: HR)
  Receive Date: 20250620
  Receipt Date: 20250620
  Transmission Date: 20250716
  Serious: Yes (Life-Threatening, Other)
  Sender: REGENERON
  Company Number: None

PATIENT
  Age: 60 Year
  Sex: Female

DRUGS (1)
  1. LIBTAYO [Suspect]
     Active Substance: CEMIPLIMAB-RWLC
     Indication: Lung cancer metastatic
     Dosage: 350 MG SVAKA 3 TJEDNA
     Route: 042
     Dates: start: 20250411, end: 20250411

REACTIONS (3)
  - Dyspnoea [Recovered/Resolved]
  - Choking [Recovered/Resolved]
  - Cyanosis [Recovered/Resolved]

NARRATIVE: CASE EVENT DATE: 20250411
